FAERS Safety Report 23701794 (Version 3)
Quarter: 2024Q3

REPORT INFORMATION
  Report Type: Spontaneous
  Country: US (occurrence: US)
  Receive Date: 20240403
  Receipt Date: 20240925
  Transmission Date: 20241016
  Serious: No
  Sender: BRISTOL MYERS SQUIBB
  Company Number: US-BRISTOL-MYERS SQUIBB COMPANY-2024-052560

PATIENT
  Age: 70 Year
  Sex: Female

DRUGS (1)
  1. REVLIMID [Suspect]
     Active Substance: LENALIDOMIDE
     Indication: Plasma cell myeloma
     Route: 048

REACTIONS (7)
  - Nerve compression [Unknown]
  - Product dose omission issue [Unknown]
  - Rash [Recovering/Resolving]
  - Diarrhoea [Unknown]
  - Dehydration [Not Recovered/Not Resolved]
  - Glomerular filtration rate decreased [Unknown]
  - Cardiac index increased [Unknown]
